FAERS Safety Report 8021177-5 (Version None)
Quarter: 2012Q1

REPORT INFORMATION
  Report Type: 
  Country: None (occurrence: None)
  Receive Date: 20120104
  Receipt Date: 20111221
  Transmission Date: 20120608
  Serious: Yes (Hospitalization)
  Sender: FDA-Public Use
  Company Number: FR-UCBSA-048330

PATIENT
  Age: 21 Year
  Sex: Female

DRUGS (8)
  1. PHENOBARBITAL TAB [Concomitant]
     Indication: EPILEPSY
     Dosage: DAILY DOSE: 150 MG
     Route: 048
     Dates: start: 20111001
  2. POLARAMINE [Concomitant]
     Dates: start: 20111101, end: 20111123
  3. KEPPRA [Concomitant]
     Indication: EPILEPSY
     Dates: start: 20111001, end: 20110101
  4. LAMICTAL [Concomitant]
     Dates: end: 20111001
  5. FOSPHENYTOIN SODIUM [Concomitant]
     Indication: EPILEPSY
     Dates: start: 20111001, end: 20110101
  6. LYRICA [Concomitant]
     Dosage: 75 MG IN MORNING AND 75 MG IN EVENING
     Dates: start: 20111123
  7. TRILEPTAL [Concomitant]
     Indication: EPILEPSY
     Dosage: DAILY DOSE: 900 MG
     Route: 048
  8. VIMPAT [Suspect]
     Indication: EPILEPSY
     Route: 048
     Dates: start: 20111115, end: 20111120

REACTIONS (2)
  - TOXIC SKIN ERUPTION [None]
  - RASH MACULO-PAPULAR [None]
